FAERS Safety Report 9783140 (Version 8)
Quarter: 2014Q1

REPORT INFORMATION
  Report Type: Spontaneous
  Country: JP (occurrence: JP)
  Receive Date: 20131226
  Receipt Date: 20140307
  Transmission Date: 20141002
  Serious: Yes (Hospitalization, Disabling, Other)
  Sender: FDA-Public Use
  Company Number: JP-PFIZER INC-2013367805

PATIENT
  Age: 70 Year
  Sex: Male

DRUGS (6)
  1. CELECOX [Suspect]
     Indication: BACK PAIN
     Dosage: 100 MG, 2X/DAY
     Route: 048
     Dates: start: 201203, end: 20131206
  2. LYRICA [Suspect]
     Indication: NEURALGIA
     Dosage: 150 MG, 2X/DAY
     Route: 048
     Dates: start: 201203, end: 20131219
  3. LYRICA [Suspect]
     Indication: BACK PAIN
  4. LYRICA [Suspect]
     Indication: BACK PAIN
  5. PARIET [Concomitant]
     Indication: PROPHYLAXIS AGAINST GASTROINTESTINAL ULCER
     Dosage: UNK
     Route: 048
  6. LOXONIN [Concomitant]
     Dosage: UNK
     Dates: start: 201203

REACTIONS (1)
  - Hepatic function abnormal [Recovering/Resolving]
